FAERS Safety Report 5932314-8 (Version None)
Quarter: 2008Q4

REPORT INFORMATION
  Report Type: 
  Country: None (occurrence: None)
  Receive Date: 20081028
  Receipt Date: 20081016
  Transmission Date: 20090506
  Serious: Yes (Death, Other)
  Sender: FDA-Public Use
  Company Number: PL-ROCHE-592043

PATIENT

DRUGS (4)
  1. INTERFERON ALFA [Suspect]
     Indication: MULTIPLE MYELOMA
     Route: 065
  2. METHYLPREDNISOLONE 16MG TAB [Suspect]
     Indication: MULTIPLE MYELOMA
     Dosage: 5 CYCLES
     Route: 065
  3. MELPHALAN [Suspect]
     Indication: MULTIPLE MYELOMA
     Route: 065
  4. PREDNISONE TAB [Suspect]
     Indication: MULTIPLE MYELOMA
     Route: 065

REACTIONS (2)
  - MULTIPLE MYELOMA [None]
  - PATHOLOGICAL FRACTURE [None]
